FAERS Safety Report 19703995 (Version 1)
Quarter: 2021Q3

REPORT INFORMATION
  Report Type: Spontaneous
  Country: US (occurrence: US)
  Receive Date: 20210813
  Receipt Date: 20210813
  Transmission Date: 20211014
  Serious: Yes (Hospitalization)
  Sender: FDA-Public Use
  Company Number: None

PATIENT
  Age: 64 Year
  Sex: Male
  Weight: 102 kg

DRUGS (12)
  1. CALCIUM CARBONATE 500MG [Concomitant]
  2. VITAMIN D3 5000IU [Concomitant]
  3. POTASSIUM CHLORIDE ER 10MEQ [Concomitant]
     Active Substance: POTASSIUM CHLORIDE
  4. ERLEADA [Suspect]
     Active Substance: APALUTAMIDE
     Indication: PROSTATE CANCER
     Route: 048
     Dates: start: 20210130
  5. BUSPIRONE 10MG [Concomitant]
     Active Substance: BUSPIRONE HYDROCHLORIDE
  6. PANTOPRAZOLE 40MG [Concomitant]
     Active Substance: PANTOPRAZOLE SODIUM
  7. MAGNESIUM OXIDE 400MG [Concomitant]
     Active Substance: MAGNESIUM OXIDE
  8. ROSUVASTATIN 20MG [Concomitant]
     Active Substance: ROSUVASTATIN
  9. ATORVASTATIN 10MG [Concomitant]
     Active Substance: ATORVASTATIN
  10. ASPIRIN 81MG [Concomitant]
     Active Substance: ASPIRIN
  11. ONDANSETRON 8MG [Concomitant]
     Active Substance: ONDANSETRON
  12. TOLTERODINE ER 2MG [Concomitant]

REACTIONS (2)
  - Oesophageal disorder [None]
  - Vomiting [None]

NARRATIVE: CASE EVENT DATE: 20210813
